FAERS Safety Report 5239414-9 (Version None)
Quarter: 2007Q1

REPORT INFORMATION
  Report Type: 
  Country: None (occurrence: None)
  Receive Date: 20070216
  Receipt Date: 20070209
  Transmission Date: 20070707
  Serious: Yes (Other)
  Sender: FDA-Public Use
  Company Number: GB-JNJFOC-20070105293

PATIENT
  Age: 6 Decade
  Sex: Female

DRUGS (3)
  1. DURAGESIC-100 [Suspect]
     Route: 062
  2. DURAGESIC-100 [Suspect]
     Indication: BACK PAIN
     Route: 062
  3. SEVREDOL [Concomitant]
     Indication: BREAKTHROUGH PAIN
     Route: 065

REACTIONS (2)
  - DYSARTHRIA [None]
  - FACIAL PALSY [None]
